FAERS Safety Report 7443680-9 (Version None)
Quarter: 2011Q2

REPORT INFORMATION
  Report Type: 
  Country: None (occurrence: None)
  Receive Date: 20110428
  Receipt Date: 20110420
  Transmission Date: 20111010
  Serious: Yes (Other)
  Sender: FDA-Public Use
  Company Number: PL-GENZYME-THYM-1002433

PATIENT
  Age: 29 Year
  Sex: Female

DRUGS (13)
  1. FLUCONAZOLE [Concomitant]
     Indication: INFECTION PROPHYLAXIS
     Route: 065
  2. ACYCLOVIR [Concomitant]
     Indication: INFECTION PROPHYLAXIS
     Route: 065
  3. NEUPOGEN [Concomitant]
     Indication: BONE MARROW CONDITIONING REGIMEN
     Dosage: 5 MCG/KG, UNK
     Route: 065
  4. INSULIN [Concomitant]
     Indication: BLOOD GLUCOSE
     Route: 065
  5. COTRIM [Concomitant]
     Indication: INFECTION PROPHYLAXIS
  6. ORAL CONTRACEPTIVE NOS [Concomitant]
     Indication: ORAL CONTRACEPTION
  7. THYMOGLOBULIN [Suspect]
     Indication: BONE MARROW CONDITIONING REGIMEN
     Dosage: 0.5 MG/KG, ONCE
     Route: 042
  8. CYCLOPHOSPHAMIDE [Concomitant]
     Indication: BONE MARROW CONDITIONING REGIMEN
     Dosage: 50 MG/KG, QD
     Route: 042
  9. MESNA [Concomitant]
     Indication: PROPHYLAXIS
     Route: 065
  10. ACARBOSE [Concomitant]
     Indication: BLOOD GLUCOSE
     Dosage: 300 MG, UNK
     Route: 065
  11. THYMOGLOBULIN [Suspect]
     Dosage: 1 MG/KG, QD
     Route: 042
  12. CYCLOPHOSPHAMIDE [Concomitant]
     Indication: HAEMATOPOIETIC STEM CELL MOBILISATION
  13. CETIRIZINE HCL [Concomitant]
     Indication: ALLERGY PROPHYLAXIS
     Dosage: 20 MG, UNK
     Route: 065

REACTIONS (3)
  - FEBRILE NEUTROPENIA [None]
  - PYREXIA [None]
  - NAUSEA [None]
